FAERS Safety Report 22153572 (Version 2)
Quarter: 2023Q1

REPORT INFORMATION
  Report Type: Spontaneous
  Country: CH (occurrence: CH)
  Receive Date: 20230330
  Receipt Date: 20230330
  Transmission Date: 20230417
  Serious: Yes (Other)
  Sender: FDA-Public Use
  Company Number: None

PATIENT
  Age: 83 Year
  Sex: Female
  Weight: 94 kg

DRUGS (13)
  1. XARELTO [Suspect]
     Active Substance: RIVAROXABAN
     Indication: Atrial fibrillation
     Dosage: 15 MG, UNK
     Route: 048
     Dates: end: 20230210
  2. AMIODARONE [Suspect]
     Active Substance: AMIODARONE
     Dosage: 200 MG, UNK
     Route: 048
     Dates: start: 20230201, end: 20230208
  3. AMIODARONE [Suspect]
     Active Substance: AMIODARONE
     Dosage: 200 MG, UNK
     Route: 048
     Dates: start: 20230214, end: 20230217
  4. CANDESARTAN [Suspect]
     Active Substance: CANDESARTAN
     Indication: Hypertension
     Route: 048
     Dates: end: 20230207
  5. FLUTICASONE FUROATE\VILANTEROL TRIFENATATE [Concomitant]
     Active Substance: FLUTICASONE FUROATE\VILANTEROL TRIFENATATE
  6. POLYETHYLENE GLYCOL\POTASSIUM CHLORIDE\SODIUM BICARBONATE\SODIUM CHLOR [Concomitant]
     Active Substance: POLYETHYLENE GLYCOL\POTASSIUM CHLORIDE\SODIUM BICARBONATE\SODIUM CHLORIDE
  7. ASTEMIZOLE [Concomitant]
     Active Substance: ASTEMIZOLE
  8. TORSEMIDE [Concomitant]
     Active Substance: TORSEMIDE
  9. ESOMEPRAZOLE [Concomitant]
     Active Substance: ESOMEPRAZOLE
  10. DULOXETINE [Concomitant]
     Active Substance: DULOXETINE
  11. BISOPROLOL [Concomitant]
     Active Substance: BISOPROLOL
  12. VITAMIN D3 [Concomitant]
     Active Substance: CHOLECALCIFEROL
  13. ALBUTEROL [Concomitant]
     Active Substance: ALBUTEROL

REACTIONS (1)
  - Drug reaction with eosinophilia and systemic symptoms [Recovering/Resolving]

NARRATIVE: CASE EVENT DATE: 20230207
